FAERS Safety Report 5816994-3 (Version None)
Quarter: 2008Q3

REPORT INFORMATION
  Report Type: 
  Country: None (occurrence: None)
  Receive Date: 20080722
  Receipt Date: 20080710
  Transmission Date: 20090109
  Serious: Yes (Other)
  Sender: FDA-Public Use
  Company Number: NO-JNJFOC-20080703344

PATIENT
  Sex: Male

DRUGS (5)
  1. REMICADE [Suspect]
     Dosage: TOTAL # INFUSIONS: 3
     Route: 042
  2. REMICADE [Suspect]
     Indication: COLITIS ULCERATIVE
     Dosage: ONCE ONLY
     Route: 042
  3. ASACOL [Concomitant]
     Indication: COLITIS ULCERATIVE
     Route: 048
  4. IMUREL [Concomitant]
     Indication: COLITIS ULCERATIVE
     Route: 048
  5. CALCIGRAN FORTE [Concomitant]
     Indication: OSTEOPOROSIS PROPHYLAXIS
     Route: 048

REACTIONS (6)
  - ANXIETY [None]
  - FLUSHING [None]
  - HYPOAESTHESIA [None]
  - INFUSION RELATED REACTION [None]
  - NAUSEA [None]
  - THROAT TIGHTNESS [None]
